FAERS Safety Report 14336032 (Version 3)
Quarter: 2018Q1

REPORT INFORMATION
  Report Type: Spontaneous
  Country: US (occurrence: US)
  Receive Date: 20171229
  Receipt Date: 20180131
  Transmission Date: 20180509
  Serious: No
  Sender: FDA-Public Use
  Company Number: US-VERTEX PHARMACEUTICALS-2017-007152

PATIENT
  Age: 2 Year

DRUGS (1)
  1. KALYDECO [Suspect]
     Active Substance: IVACAFTOR
     Indication: CYSTIC FIBROSIS
     Dosage: UNK
     Route: 048

REACTIONS (5)
  - Decreased appetite [Unknown]
  - Vomiting [Unknown]
  - Impaired gastric emptying [Unknown]
  - Retching [Unknown]
  - Abdominal pain [Unknown]
